FAERS Safety Report 7492690-4 (Version None)
Quarter: 2011Q2

REPORT INFORMATION
  Report Type: 
  Country: None (occurrence: None)
  Receive Date: 20110519
  Receipt Date: 20110516
  Transmission Date: 20111010
  Serious: Yes (Other)
  Sender: FDA-Public Use
  Company Number: GB-ABBOTT-11P-167-0726403-00

PATIENT
  Age: 42 Year
  Sex: Male

DRUGS (7)
  1. SENNA-MINT WAF [Concomitant]
     Indication: PRODUCT USED FOR UNKNOWN INDICATION
  2. HYOSCINE [Concomitant]
     Indication: PRODUCT USED FOR UNKNOWN INDICATION
  3. VALPROIC ACID [Suspect]
     Indication: PRODUCT USED FOR UNKNOWN INDICATION
     Dosage: DAILY
  4. DIAZEPAM [Suspect]
     Indication: PRODUCT USED FOR UNKNOWN INDICATION
     Dosage: DAILY
  5. AMISULPRIDE [Suspect]
     Indication: PRODUCT USED FOR UNKNOWN INDICATION
     Dosage: DAILY
  6. VOLTAREN [Concomitant]
     Indication: PRODUCT USED FOR UNKNOWN INDICATION
  7. CLOZARIL [Suspect]
     Indication: SCHIZOPHRENIA
     Dates: start: 20060220

REACTIONS (10)
  - NEUTROPENIA [None]
  - ANTIBODY TEST ABNORMAL [None]
  - WHITE BLOOD CELL COUNT INCREASED [None]
  - ANAEMIA [None]
  - POOR PERSONAL HYGIENE [None]
  - EOSINOPHIL COUNT INCREASED [None]
  - SUBACUTE ENDOCARDITIS [None]
  - C-REACTIVE PROTEIN INCREASED [None]
  - MYOCARDITIS [None]
  - TOOTH INFECTION [None]
